FAERS Safety Report 9773029 (Version 1)
Quarter: 2013Q4

REPORT INFORMATION
  Report Type: Spontaneous
  Country: DE (occurrence: None)
  Receive Date: 20131217
  Receipt Date: 20131217
  Transmission Date: 20140711
  Serious: Yes (Hospitalization, Other)
  Sender: FDA-Public Use
  Company Number: 7255196

PATIENT
  Age: 78 Year
  Sex: Female

DRUGS (2)
  1. EUTHYROX [Suspect]
     Indication: THYROIDECTOMY
     Dosage: (75 MCG)
     Route: 048
     Dates: end: 20131202
  2. NOVOTHYRAL [Suspect]
     Indication: PRODUCT USED FOR UNKNOWN INDICATION
     Dosage: (1, 3/4, 1/2)
     Route: 048
     Dates: end: 1983

REACTIONS (6)
  - Ocular hyperaemia [None]
  - Eye haemorrhage [None]
  - Tongue paralysis [None]
  - Chest discomfort [None]
  - Oedema mouth [None]
  - Headache [None]
